FAERS Safety Report 20716717 (Version 1)
Quarter: 2022Q2

REPORT INFORMATION
  Report Type: Report from Study
  Country: US (occurrence: US)
  Receive Date: 20220416
  Receipt Date: 20220416
  Transmission Date: 20220720
  Serious: Yes (Hospitalization)
  Sender: FDA-Public Use
  Company Number: US-BRISTOL-MYERS SQUIBB COMPANY-2022-017482

PATIENT
  Sex: Female
  Weight: 62.6 kg

DRUGS (3)
  1. REVLIMID [Suspect]
     Active Substance: LENALIDOMIDE
     Indication: Non-Hodgkin^s lymphoma
     Route: 048
     Dates: start: 2015
  2. ZOLINZA [Concomitant]
     Active Substance: VORINOSTAT
     Indication: Product used for unknown indication
     Route: 065
  3. DAILY-VITE [Concomitant]
     Indication: Product used for unknown indication
     Route: 065

REACTIONS (2)
  - Gallbladder disorder [Unknown]
  - Product dose omission issue [Unknown]
